FAERS Safety Report 22280063 (Version 1)
Quarter: 2023Q2

REPORT INFORMATION
  Report Type: Spontaneous
  Country: CN (occurrence: CN)
  Receive Date: 20230503
  Receipt Date: 20230503
  Transmission Date: 20230722
  Serious: Yes (Hospitalization, Other)
  Sender: FDA-Public Use
  Company Number: CN-009507513-2305CHN000600

PATIENT
  Age: 54 Year
  Sex: Male

DRUGS (3)
  1. KEYTRUDA [Suspect]
     Active Substance: PEMBROLIZUMAB
     Indication: Chemotherapy
     Dosage: 200MG, ONCE
     Route: 041
     Dates: start: 20230322, end: 20230322
  2. PEMETREXED DISODIUM [Concomitant]
     Active Substance: PEMETREXED DISODIUM
     Indication: Chemotherapy
     Dosage: 0.8G, ONCE
     Route: 041
     Dates: start: 20230322, end: 20230322
  3. CISPLATIN [Concomitant]
     Active Substance: CISPLATIN
     Indication: Chemotherapy
     Dosage: 50MG, QD, FORMULATION: LYOPHILISATE
     Route: 041
     Dates: start: 20230322, end: 20230323

REACTIONS (1)
  - Pericardial effusion [Recovering/Resolving]

NARRATIVE: CASE EVENT DATE: 20230327
